FAERS Safety Report 16969518 (Version 1)
Quarter: 2019Q4

REPORT INFORMATION
  Report Type: Spontaneous
  Country: FR (occurrence: FR)
  Receive Date: 20191029
  Receipt Date: 20191029
  Transmission Date: 20200122
  Serious: Yes (Disabling)
  Sender: FDA-Public Use
  Company Number: FR-PFIZER INC-2019466890

PATIENT
  Age: 59 Year
  Sex: Male

DRUGS (3)
  1. CRESTOR [Suspect]
     Active Substance: ROSUVASTATIN CALCIUM
     Indication: DYSLIPIDAEMIA
     Dosage: 1 DF, QD
     Route: 048
  2. CORDARONE [Suspect]
     Active Substance: AMIODARONE HYDROCHLORIDE
     Indication: ATRIAL FIBRILLATION
     Dosage: 200 MG, QD
     Route: 048
  3. FLECAINE LP [Suspect]
     Active Substance: FLECAINIDE
     Indication: ATRIAL FIBRILLATION
     Dosage: 1 DF, QD
     Route: 048

REACTIONS (1)
  - Axonal neuropathy [Not Recovered/Not Resolved]

NARRATIVE: CASE EVENT DATE: 2004
